FAERS Safety Report 6698807-3 (Version None)
Quarter: 2010Q2

REPORT INFORMATION
  Report Type: 
  Country: None (occurrence: None)
  Receive Date: 20100427
  Receipt Date: 20100419
  Transmission Date: 20101027
  Serious: Yes (Hospitalization)
  Sender: FDA-Public Use
  Company Number: PHHY2010US24827

PATIENT
  Sex: Female
  Weight: 62 kg

DRUGS (4)
  1. RECLAST [Suspect]
     Indication: OSTEOPOROSIS
     Dosage: 5 MG YEARLY
     Route: 042
     Dates: start: 20091216
  2. TYLENOL-500 [Concomitant]
     Dosage: UNK
  3. DARVOCET-N 100 [Concomitant]
  4. ULTRAM [Concomitant]

REACTIONS (3)
  - ARTHRALGIA [None]
  - ASTHENIA [None]
  - CARDIAC FAILURE CONGESTIVE [None]
